FAERS Safety Report 4443820-X (Version None)
Quarter: 2004Q3

REPORT INFORMATION
  Report Type: 
  Country: None (occurrence: None)
  Receive Date: 20040729
  Receipt Date: 20031218
  Transmission Date: 20050211
  Serious: Yes (Death)
  Sender: FDA-Public Use
  Company Number: USA-2003-0012179

PATIENT
  Age: 21 Year
  Sex: Male
  Weight: 87.5 kg

DRUGS (2)
  1. MORPHINE SULFATE [Suspect]
  2. CODEINE (CODEINE) [Suspect]

REACTIONS (1)
  - ACCIDENTAL OVERDOSE [None]
